FAERS Safety Report 15335293 (Version 1)
Quarter: 2018Q3

REPORT INFORMATION
  Report Type: Spontaneous
  Country: IT (occurrence: IT)
  Receive Date: 20180830
  Receipt Date: 20180830
  Transmission Date: 20181010
  Serious: Yes (Other)
  Sender: FDA-Public Use
  Company Number: PHHY2018IT081538

PATIENT
  Age: 72 Year
  Sex: Female
  Weight: 156 kg

DRUGS (4)
  1. FLUOROURACIL. [Suspect]
     Active Substance: FLUOROURACIL
     Dosage: 3052 MG, UNK
     Route: 042
     Dates: start: 20180511
  2. AVASTIN [Suspect]
     Active Substance: BEVACIZUMAB
     Indication: ADENOCARCINOMA OF COLON
     Dosage: 290 MG, (1 CYCLIC)
     Route: 042
     Dates: start: 20180511
  3. OXALIPLATIN. [Suspect]
     Active Substance: OXALIPLATIN
     Indication: ADENOCARCINOMA OF COLON
     Dosage: 108 MG,(1 CYCLICAL)
     Route: 042
     Dates: start: 20180511
  4. FLUOROURACIL. [Suspect]
     Active Substance: FLUOROURACIL
     Indication: ADENOCARCINOMA OF COLON
     Dosage: 508 MG, (1 CYCLICAL)
     Route: 040
     Dates: start: 20180511

REACTIONS (3)
  - Mucosal inflammation [Recovering/Resolving]
  - Dyspepsia [Recovering/Resolving]
  - Decreased appetite [Recovering/Resolving]

NARRATIVE: CASE EVENT DATE: 20180601
